FAERS Safety Report 7410852-9 (Version None)
Quarter: 2011Q2

REPORT INFORMATION
  Report Type: 
  Country: None (occurrence: None)
  Receive Date: 20110413
  Receipt Date: 20110406
  Transmission Date: 20111010
  Serious: No
  Sender: FDA-Public Use
  Company Number: US-PFIZER INC-2011076525

PATIENT
  Sex: Male
  Weight: 132 kg

DRUGS (4)
  1. ADVIL LIQUI-GELS [Suspect]
     Indication: NEPHROLITHIASIS
  2. NIFEDIPINE [Concomitant]
     Indication: HYPERTENSION
     Dosage: 30 MG, UNK
  3. ADVIL LIQUI-GELS [Suspect]
     Indication: HEADACHE
     Dosage: 200 MG, UNK
     Dates: start: 20110101
  4. LISINOPRIL [Concomitant]
     Indication: HYPERTENSION
     Dosage: 40 MG, UNK

REACTIONS (6)
  - NAUSEA [None]
  - ABDOMINAL PAIN UPPER [None]
  - MIDDLE INSOMNIA [None]
  - PAIN [None]
  - ABDOMINAL DISCOMFORT [None]
  - NIGHT SWEATS [None]
